FAERS Safety Report 8167644-5 (Version None)
Quarter: 2012Q1

REPORT INFORMATION
  Report Type: 
  Country: None (occurrence: None)
  Receive Date: 20120227
  Receipt Date: 20120216
  Transmission Date: 20120608
  Serious: Yes (Hospitalization)
  Sender: FDA-Public Use
  Company Number: KR-SANOFI-AVENTIS-200717208GDDC

PATIENT
  Age: 48 Year
  Sex: Female
  Weight: 68.2 kg

DRUGS (11)
  1. DOCETAXEL [Suspect]
     Dosage: DOSE UNIT: 75 MG/M**2
     Route: 042
     Dates: start: 20070503, end: 20070503
  2. CONOFEN [Concomitant]
     Dosage: DOSE AS USED: 2 C
     Route: 048
  3. TROPISETRON [Concomitant]
     Route: 042
  4. PHENIRAMINE MALEATE [Concomitant]
     Route: 042
  5. RANITIDINE [Concomitant]
     Route: 042
  6. CIPROFLOXACIN [Concomitant]
     Route: 048
  7. DEXAMETHASONE [Concomitant]
     Route: 048
  8. MAGNESIUM OXIDE [Concomitant]
     Route: 048
  9. DEXAMETHASONE [Concomitant]
     Route: 042
  10. RANITIDINE [Concomitant]
     Route: 048
  11. TROPISETRON [Concomitant]
     Route: 048

REACTIONS (1)
  - GLUCOSE TOLERANCE IMPAIRED [None]
